FAERS Safety Report 14606431 (Version 1)
Quarter: 2018Q1

REPORT INFORMATION
  Report Type: Spontaneous
  Country: DE (occurrence: DE)
  Receive Date: 20180307
  Receipt Date: 20180307
  Transmission Date: 20180509
  Serious: Yes (Hospitalization, Other)
  Sender: FDA-Public Use
  Company Number: DE-CONCORDIA PHARMACEUTICALS INC.-E2B_00010304

PATIENT
  Sex: Male

DRUGS (19)
  1. PREDNISOLONE. [Suspect]
     Active Substance: PREDNISOLONE
     Dosage: 500 MG, QD (1-0-0, FOR 5 DAYS)
     Route: 048
     Dates: start: 20171107, end: 20171111
  2. VINCRISTINE [Suspect]
     Active Substance: VINCRISTINE
     Indication: B-CELL LYMPHOMA
     Dosage: 3.12 MG, QD (1 TIME A DAY FOR 1 DAY)
     Route: 042
     Dates: start: 20171012, end: 20171012
  3. RITUXIMAB. [Suspect]
     Active Substance: RITUXIMAB
     Indication: B-CELL LYMPHOMA
     Route: 042
     Dates: start: 20171011, end: 20171011
  4. DOXORUBICIN [Suspect]
     Active Substance: DOXORUBICIN
     Indication: B-CELL LYMPHOMA
     Dosage: 1 DF, QD
     Route: 042
     Dates: start: 20171012, end: 20171012
  5. PEGFILGRASTIM [Suspect]
     Active Substance: PEGFILGRASTIM
     Dosage: 6 MG, QD
     Route: 042
     Dates: start: 20171015, end: 20171015
  6. RITUXIMAB. [Suspect]
     Active Substance: RITUXIMAB
     Dosage: 660 MG, QD (1 TIME A DAY FOR 1 DAY)
     Route: 042
     Dates: start: 20171107, end: 20171107
  7. DOXORUBICIN [Suspect]
     Active Substance: DOXORUBICIN
     Dosage: 95 MG, QD
     Route: 042
     Dates: start: 20171012, end: 20171012
  8. SIMVASTATIN. [Concomitant]
     Active Substance: SIMVASTATIN
     Indication: HYPERCHOLESTEROLAEMIA
     Dosage: 20 MG, QD
     Route: 048
     Dates: start: 20171010
  9. ZOPICLONE [Concomitant]
     Active Substance: ZOPICLONE
     Indication: SLEEP DISORDER THERAPY
     Dosage: 7.5 MG, QD
     Route: 048
     Dates: start: 20171010
  10. DOXORUBICIN [Suspect]
     Active Substance: DOXORUBICIN
     Dosage: 95 MG, QD  (1 TIME A DAY FOR 1 DAY)
     Route: 042
     Dates: start: 20171108
  11. PEGFILGRASTIM [Suspect]
     Active Substance: PEGFILGRASTIM
     Indication: B-CELL LYMPHOMA
     Dosage: 6 MG, QD
     Route: 058
     Dates: start: 20171111, end: 20171111
  12. PREDNISOLONE. [Suspect]
     Active Substance: PREDNISOLONE
     Indication: B-CELL LYMPHOMA
     Dosage: 500 MG, QD
     Route: 042
     Dates: start: 20171012, end: 20171012
  13. CYCLOPHOSPHAMIDE. [Suspect]
     Active Substance: CYCLOPHOSPHAMIDE
     Indication: B-CELL LYMPHOMA
     Dosage: 1 DF, QD (DATE OF LAST DOSE OF A PRIOR TO SERIOUS ADVERSE EVENT )
     Route: 042
     Dates: start: 20171012, end: 20171012
  14. CYCLOPHOSPHAMIDE. [Suspect]
     Active Substance: CYCLOPHOSPHAMIDE
     Dosage: 1400 MG, QD (1 TIME A DAY FOR 1 DAY)
     Route: 042
     Dates: start: 20171108, end: 20171108
  15. TAMSULOSIN [Concomitant]
     Active Substance: TAMSULOSIN
     Dosage: 4 MG, QD
     Route: 048
     Dates: start: 20171010
  16. ASPIRIN. [Concomitant]
     Active Substance: ASPIRIN
     Indication: PROPHYLAXIS
     Dosage: 100 MG, QD
     Route: 048
     Dates: start: 20171010
  17. VINCRISTINE [Suspect]
     Active Substance: VINCRISTINE
     Dosage: 1 UNK,(DATE OF LAST DOSE OF A PRIOR TO SERIOUS ADVERSE EVENT )
     Route: 042
     Dates: start: 20171012, end: 20171012
  18. TAMSULOSIN [Concomitant]
     Active Substance: TAMSULOSIN
     Indication: BENIGN PROSTATIC HYPERPLASIA
     Dosage: 20 MG, QD
     Route: 065
     Dates: start: 20171010
  19. LISINOPRIL. [Concomitant]
     Active Substance: LISINOPRIL
     Indication: ANGIOTENSIN CONVERTING ENZYME DECREASED
     Dosage: 20 MG, QD
     Route: 048
     Dates: start: 20171010

REACTIONS (4)
  - Anaemia [Recovered/Resolved]
  - Acute kidney injury [Recovered/Resolved]
  - Bronchitis [Recovered/Resolved]
  - Lung infection [Recovered/Resolved]

NARRATIVE: CASE EVENT DATE: 20171024
